FAERS Safety Report 22323923 (Version 1)
Quarter: 2023Q2

REPORT INFORMATION
  Report Type: Spontaneous
  Country: US (occurrence: None)
  Receive Date: 20230512
  Receipt Date: 20230512
  Transmission Date: 20230722
  Serious: Yes (Other)
  Sender: FDA-Public Use
  Company Number: None

PATIENT
  Age: 3 Year
  Sex: 0
  Weight: 13.5 kg

DRUGS (2)
  1. MIRALAX [Suspect]
     Active Substance: POLYETHYLENE GLYCOL 3350
     Indication: Constipation
     Dates: start: 20220720, end: 20230330
  2. MIRALAX [Suspect]
     Active Substance: POLYETHYLENE GLYCOL 3350
     Indication: Encopresis

REACTIONS (6)
  - Anxiety [None]
  - Dermatillomania [None]
  - Non-24-hour sleep-wake disorder [None]
  - Anger [None]
  - Somnambulism [None]
  - Abnormal behaviour [None]

NARRATIVE: CASE EVENT DATE: 20230302
